FAERS Safety Report 7218846-3 (Version None)
Quarter: 2011Q1

REPORT INFORMATION
  Report Type: 
  Country: None (occurrence: None)
  Receive Date: 20110110
  Receipt Date: 20110103
  Transmission Date: 20110831
  Serious: No
  Sender: FDA-Public Use
  Company Number: US-PFIZER INC-2011001481

PATIENT
  Age: 17 Year
  Sex: Female

DRUGS (1)
  1. ADVIL [Suspect]
     Indication: PYREXIA
     Dosage: 2 TABLETS PRN
     Route: 048
     Dates: start: 20110103, end: 20110103

REACTIONS (1)
  - VOMITING [None]
